FAERS Safety Report 18334985 (Version 3)
Quarter: 2020Q4

REPORT INFORMATION
  Report Type: Report from Study
  Country: IN (occurrence: IN)
  Receive Date: 20201001
  Receipt Date: 20201105
  Transmission Date: 20210113
  Serious: Yes (Death, Hospitalization)
  Sender: FDA-Public Use
  Company Number: IN-PFIZER INC-2020378456

PATIENT
  Age: 74 Year
  Sex: Male
  Weight: 62 kg

DRUGS (4)
  1. DEXAMETHASONE. [Concomitant]
     Active Substance: DEXAMETHASONE
     Dosage: 8 MG, 1X/DAY
     Route: 042
     Dates: start: 20200531
  2. MANNITOL. [Concomitant]
     Active Substance: MANNITOL
     Dosage: UNK
     Dates: start: 20200531, end: 20200602
  3. LORLATINIB [Suspect]
     Active Substance: LORLATINIB
     Dosage: 25 MG, 4X/DAY
  4. LORLATINIB [Suspect]
     Active Substance: LORLATINIB
     Indication: NON-SMALL CELL LUNG CANCER
     Dosage: 25 MG, 4X/DAY
     Route: 048
     Dates: start: 20191026, end: 20200531

REACTIONS (1)
  - Neoplasm progression [Fatal]

NARRATIVE: CASE EVENT DATE: 20200531
